FAERS Safety Report 8776274 (Version 4)
Quarter: 2012Q4

REPORT INFORMATION
  Report Type: 
  Country: DE (occurrence: DE)
  Receive Date: 20120910
  Receipt Date: 20121218
  Transmission Date: 20130627
  Serious: Yes (Hospitalization)
  Sender: FDA-Public Use
  Company Number: DE-SP-2012-08094

PATIENT
  Age: 69 Year
  Sex: Male

DRUGS (1)
  1. IMMUCYST [Suspect]
     Indication: BLADDER CANCER
     Dosage: Not reported
     Route: 043
     Dates: end: 20120807

REACTIONS (10)
  - Bovine tuberculosis [Unknown]
  - Granuloma [Unknown]
  - Cystitis [Unknown]
  - Pollakiuria [Unknown]
  - Bladder spasm [Unknown]
  - Mucosal inflammation [Unknown]
  - Haematuria [Unknown]
  - Abdominal pain [Unknown]
  - Dysuria [Unknown]
  - Neck pain [Unknown]
